FAERS Safety Report 4380027-9 (Version None)
Quarter: 2004Q2

REPORT INFORMATION
  Report Type: 
  Country: None (occurrence: None)
  Receive Date: 20040614
  Receipt Date: 20040531
  Transmission Date: 20050107
  Serious: Yes (Hospitalization)
  Sender: FDA-Public Use
  Company Number: 2004036580

PATIENT
  Age: 55 Year
  Sex: Female
  Weight: 86.1 kg

DRUGS (3)
  1. ZOLOFT [Suspect]
     Indication: ILL-DEFINED DISORDER
  2. ALL OTHER THERAPEUTIC PRODUCT(ALL OTHER THERAPEUTIC PRODUCT) [Suspect]
     Indication: PULMONARY FIBROSIS
     Dates: start: 20021001
  3. ALL OTHER THERAPEUTIC PRODUCT(ALL OTHER THERAPEUTIC PRODUCT) [Suspect]
     Indication: PULMONARY FIBROSIS
     Dosage: ORAL
     Route: 048

REACTIONS (11)
  - ABDOMINAL PAIN [None]
  - BLOOD CREATINE PHOSPHOKINASE INCREASED [None]
  - GASTROOESOPHAGEAL REFLUX DISEASE [None]
  - HEPATIC ENZYME INCREASED [None]
  - HIATUS HERNIA [None]
  - MUSCLE STRAIN [None]
  - MUSCULAR WEAKNESS [None]
  - NAUSEA [None]
  - OESOPHAGITIS [None]
  - SCLERODERMA [None]
  - VOMITING [None]
